FAERS Safety Report 9786030 (Version 2)
Quarter: 2014Q1

REPORT INFORMATION
  Report Type: Spontaneous
  Country: US (occurrence: US)
  Receive Date: 20131227
  Receipt Date: 20140211
  Transmission Date: 20141002
  Serious: Yes (Hospitalization)
  Sender: FDA-Public Use
  Company Number: US-ASTRAZENECA-2013SE93163

PATIENT
  Age: 84 Year
  Sex: Male
  Weight: 61.2 kg

DRUGS (6)
  1. SYMBICORT [Suspect]
     Dosage: 320 MCGS BID
     Route: 055
     Dates: start: 2003
  2. SYMBICORT [Suspect]
     Dosage: 160/4.5 MCG, TWO PUFFS, BID
     Route: 055
     Dates: start: 201312
  3. OTHER (UNSPECIFIED) [Suspect]
     Route: 065
  4. ALBUTEROL [Concomitant]
  5. SPIRIVA [Concomitant]
  6. PREDNISONE [Concomitant]

REACTIONS (2)
  - Adverse event [Unknown]
  - Macular degeneration [Not Recovered/Not Resolved]
